FAERS Safety Report 7014104-0 (Version None)
Quarter: 2010Q3

REPORT INFORMATION
  Report Type: 
  Country: None (occurrence: None)
  Receive Date: 20100927
  Receipt Date: 20100918
  Transmission Date: 20110219
  Serious: Yes (Other)
  Sender: FDA-Public Use
  Company Number: US-US-EMD SERONO, INC.-7018159

PATIENT
  Sex: Female
  Weight: 38 kg

DRUGS (5)
  1. REBIF [Suspect]
     Indication: MULTIPLE SCLEROSIS
     Route: 058
     Dates: start: 20100831
  2. REBIF [Suspect]
     Dates: start: 20100909
  3. VALIUM [Concomitant]
     Indication: ANXIETY
  4. BACLOFEN [Concomitant]
  5. VICODIN [Concomitant]
     Indication: ARTHRALGIA

REACTIONS (7)
  - BLOOD PRESSURE DECREASED [None]
  - DEHYDRATION [None]
  - FEELING HOT [None]
  - INFLUENZA LIKE ILLNESS [None]
  - INJECTION SITE DISCOLOURATION [None]
  - SOMNOLENCE [None]
  - STRESS [None]
